FAERS Safety Report 7314636-1 (Version None)
Quarter: 2011Q1

REPORT INFORMATION
  Report Type: 
  Country: None (occurrence: None)
  Receive Date: 20110225
  Receipt Date: 20101206
  Transmission Date: 20110831
  Serious: No
  Sender: FDA-Public Use
  Company Number: US-MYLANLABS-2010S1019464

PATIENT
  Age: 15 Year
  Sex: Male
  Weight: 63.5 kg

DRUGS (4)
  1. CLARAVIS [Suspect]
     Indication: ACNE CYSTIC
     Dates: start: 20100701
  2. CLARAVIS [Suspect]
  3. ZYRTEC [Concomitant]
  4. AMNESTEEM [Suspect]
     Indication: ACNE CYSTIC
     Dates: end: 20101001

REACTIONS (1)
  - OCULAR HYPERAEMIA [None]
